FAERS Safety Report 6677454-3 (Version None)
Quarter: 2010Q2

REPORT INFORMATION
  Report Type: 
  Country: None (occurrence: None)
  Receive Date: 20100412
  Receipt Date: 20100409
  Transmission Date: 20101027
  Serious: Yes (Hospitalization)
  Sender: FDA-Public Use
  Company Number: A0785704A

PATIENT
  Age: 57 Year
  Sex: Female
  Weight: 126.4 kg

DRUGS (9)
  1. AVANDIA [Suspect]
     Dosage: 8MG PER DAY
     Route: 048
     Dates: start: 20061219, end: 20070101
  2. ALTACE [Concomitant]
  3. GLIMEPIRIDE [Concomitant]
  4. COLCHICINE [Concomitant]
  5. SOMA [Concomitant]
  6. PERCOCET [Concomitant]
  7. HYDROCHLOROTHIAZIDE [Concomitant]
  8. TOPROL-XL [Concomitant]
  9. LIPITOR [Concomitant]

REACTIONS (3)
  - CORONARY ARTERY DISEASE [None]
  - MYOCARDIAL INFARCTION [None]
  - MYOCARDIAL ISCHAEMIA [None]
